FAERS Safety Report 4783586-7 (Version None)
Quarter: 2005Q3

REPORT INFORMATION
  Report Type: 
  Country: None (occurrence: None)
  Receive Date: 20050929
  Receipt Date: 20050920
  Transmission Date: 20060218
  Serious: Yes (Hospitalization)
  Sender: FDA-Public Use
  Company Number: JP-JNJFOC-20050805819

PATIENT
  Sex: Male

DRUGS (2)
  1. ITRIZOLE [Suspect]
     Route: 048
     Dates: start: 20050430
  2. ITRIZOLE [Suspect]
     Indication: ONYCHOMYCOSIS
     Route: 048
     Dates: start: 20050430

REACTIONS (4)
  - ALANINE AMINOTRANSFERASE INCREASED [None]
  - CHOLECYSTITIS [None]
  - GASTROINTESTINAL DISORDER [None]
  - JAUNDICE [None]
